FAERS Safety Report 5429327-1 (Version None)
Quarter: 2007Q3

REPORT INFORMATION
  Report Type: 
  Country: None (occurrence: None)
  Receive Date: 20070829
  Receipt Date: 20070821
  Transmission Date: 20080115
  Serious: Yes (Other)
  Sender: FDA-Public Use
  Company Number: CA-JNJFOC-20070606817

PATIENT
  Sex: Female
  Weight: 57.7 kg

DRUGS (3)
  1. REMICADE [Suspect]
     Indication: CROHN'S DISEASE
  2. BENADRYL [Suspect]
     Indication: PREMEDICATION
     Route: 042
  3. SOLU-CORTEF [Concomitant]
     Indication: PREMEDICATION
     Route: 042

REACTIONS (4)
  - DEHYDRATION [None]
  - HEART RATE DECREASED [None]
  - HEAT EXHAUSTION [None]
  - SYNCOPE VASOVAGAL [None]
